FAERS Safety Report 20206265 (Version 1)
Quarter: 2021Q4

REPORT INFORMATION
  Report Type: Spontaneous
  Country: US (occurrence: None)
  Receive Date: 20211218
  Receipt Date: 20211218
  Transmission Date: 20220303
  Serious: Yes (Other)
  Sender: FDA-Public Use
  Company Number: None

PATIENT
  Sex: Male

DRUGS (1)
  1. MYCOLOG-II [Suspect]
     Active Substance: NYSTATIN\TRIAMCINOLONE ACETONIDE

REACTIONS (1)
  - Drug ineffective [None]
